FAERS Safety Report 18186620 (Version 1)
Quarter: 2020Q3

REPORT INFORMATION
  Report Type: Spontaneous
  Country: US (occurrence: US)
  Receive Date: 20200822
  Receipt Date: 20200822
  Transmission Date: 20201103
  Serious: Yes (Hospitalization)
  Sender: FDA-Public Use
  Company Number: None

PATIENT
  Age: 62 Year
  Sex: Male
  Weight: 63.7 kg

DRUGS (2)
  1. 5?FLUOROURACIL (5?FU) (19893) [Suspect]
     Active Substance: FLUOROURACIL
     Dates: end: 20200716
  2. CISPLATIN. [Suspect]
     Active Substance: CISPLATIN
     Dates: end: 20200713

REACTIONS (2)
  - Vomiting [None]
  - Fall [None]

NARRATIVE: CASE EVENT DATE: 20200803
